FAERS Safety Report 6116557-9 (Version None)
Quarter: 2009Q1

REPORT INFORMATION
  Report Type: 
  Country: None (occurrence: None)
  Receive Date: 20090314
  Receipt Date: 20081217
  Transmission Date: 20090719
  Serious: No
  Sender: FDA-Public Use
  Company Number: US-ABBOTT-08P-163-0493527-00

PATIENT
  Sex: Female
  Weight: 65.83 kg

DRUGS (2)
  1. HUMIRA [Suspect]
     Indication: RHEUMATOID ARTHRITIS
     Dates: start: 20071101
  2. METHOTREXATE [Concomitant]
     Indication: RHEUMATOID ARTHRITIS

REACTIONS (12)
  - ANGER [None]
  - ANXIETY [None]
  - ASTHENIA [None]
  - DEPRESSION [None]
  - IRRITABILITY [None]
  - JOINT STIFFNESS [None]
  - MEMORY IMPAIRMENT [None]
  - MOOD ALTERED [None]
  - RED BLOOD CELL COUNT DECREASED [None]
  - RHEUMATOID ARTHRITIS [None]
  - VITAMIN B12 DEFICIENCY [None]
  - VITAMIN D DECREASED [None]
